FAERS Safety Report 7021552-1 (Version None)
Quarter: 2010Q3

REPORT INFORMATION
  Report Type: 
  Country: None (occurrence: None)
  Receive Date: 20100928
  Receipt Date: 20100921
  Transmission Date: 20110219
  Serious: Yes (Death, Hospitalization)
  Sender: FDA-Public Use
  Company Number: 99857

PATIENT
  Age: 82 Year
  Sex: Male
  Weight: 68 kg

DRUGS (1)
  1. LEUCOVORIN CALCIUM [Suspect]
     Indication: COLORECTAL CANCER METASTATIC
     Dosage: 730.4 MG/IV
     Route: 042
     Dates: start: 20080318, end: 20080820

REACTIONS (3)
  - ASTHENIA [None]
  - ORGANISING PNEUMONIA [None]
  - RESPIRATORY FAILURE [None]
